FAERS Safety Report 19279373 (Version 2)
Quarter: 2021Q2

REPORT INFORMATION
  Report Type: Report from Study
  Country: LB (occurrence: LB)
  Receive Date: 20210520
  Receipt Date: 20210524
  Transmission Date: 20210717
  Serious: Yes (Other)
  Sender: FDA-Public Use
  Company Number: NVSC2020LB244933

PATIENT
  Age: 7 Year
  Sex: Female

DRUGS (4)
  1. REVOLADE [Suspect]
     Active Substance: ELTROMBOPAG OLAMINE
     Indication: IMMUNE THROMBOCYTOPENIA
     Dosage: 1 DF, QD
     Route: 048
     Dates: start: 201903
  2. REVOLADE [Suspect]
     Active Substance: ELTROMBOPAG OLAMINE
     Dosage: 2 DF, QD
     Route: 048
  3. CORTISONE [Concomitant]
     Active Substance: CORTISONE
     Indication: PRODUCT USED FOR UNKNOWN INDICATION
     Dosage: UNK, (LAST WEEK FOR 4 DAYS)
     Route: 065
  4. REVOLADE [Suspect]
     Active Substance: ELTROMBOPAG OLAMINE
     Dosage: 1 DF, QD, (STRENGTH 50 MG)
     Route: 048
     Dates: start: 202010

REACTIONS (6)
  - Platelet count decreased [Not Recovered/Not Resolved]
  - Inappropriate schedule of product administration [Recovered/Resolved]
  - Constipation [Recovering/Resolving]
  - Ecchymosis [Recovered/Resolved]
  - Product dose omission issue [Unknown]
  - Gastrointestinal infection [Recovering/Resolving]

NARRATIVE: CASE EVENT DATE: 20200827
